FAERS Safety Report 7716606-8 (Version None)
Quarter: 2011Q3

REPORT INFORMATION
  Report Type: 
  Country: None (occurrence: None)
  Receive Date: 20110829
  Receipt Date: 20110816
  Transmission Date: 20111222
  Serious: No
  Sender: FDA-Public Use
  Company Number: US-B.I. PHARMACEUTICALS,INC./RIDGEFIELD-2011-BP-16208BP

PATIENT
  Age: 75 Year
  Sex: Male
  Weight: 81.65 kg

DRUGS (2)
  1. PRADAXA [Suspect]
     Indication: ATRIAL FIBRILLATION
     Dosage: 300 MG
     Route: 048
  2. LANOXIN [Concomitant]
     Dosage: 0.5 MG

REACTIONS (1)
  - SOMNOLENCE [None]
